FAERS Safety Report 6166798-X (Version None)
Quarter: 2009Q2

REPORT INFORMATION
  Report Type: 
  Country: None (occurrence: None)
  Receive Date: 20090423
  Receipt Date: 20090423
  Transmission Date: 20091009
  Serious: Yes (Other)
  Sender: FDA-Public Use
  Company Number: None

PATIENT
  Age: 31 Year
  Sex: Female
  Weight: 79.3795 kg

DRUGS (2)
  1. SULFAMETHOXAZOLE AND TRIMETHOPRIM [Suspect]
     Indication: ONYCHOMYCOSIS
     Dosage: 1 TAB BID BUCCAL
     Route: 002
     Dates: start: 20090228, end: 20090315
  2. FLUOXETINE HCL [Concomitant]

REACTIONS (7)
  - BLOOD BILIRUBIN INCREASED [None]
  - FAECES DISCOLOURED [None]
  - FATIGUE [None]
  - JAUNDICE [None]
  - LIVER FUNCTION TEST ABNORMAL [None]
  - LYMPHADENOPATHY [None]
  - URINE COLOUR ABNORMAL [None]
